FAERS Safety Report 14312495 (Version 3)
Quarter: 2018Q2

REPORT INFORMATION
  Report Type: Spontaneous
  Country: US (occurrence: US)
  Receive Date: 20171221
  Receipt Date: 20180620
  Transmission Date: 20180711
  Serious: Yes (Hospitalization)
  Sender: FDA-Public Use
  Company Number: US-PFIZER INC-2016398559

PATIENT
  Age: 81 Year
  Sex: Female
  Weight: 70.3 kg

DRUGS (2)
  1. REVATIO [Suspect]
     Active Substance: SILDENAFIL CITRATE
     Dosage: 80 MG, 3X/DAY(TAKE FOUR TABS BY MOUTH THREE TIMES DAILY)
     Route: 048
  2. REVATIO [Suspect]
     Active Substance: SILDENAFIL CITRATE
     Indication: PULMONARY ARTERIAL HYPERTENSION
     Dosage: 60 MG, 3X/DAY (TAKE 3 TABS BY MOUTH 3 TIMES DAILY)
     Route: 048

REACTIONS (3)
  - Nasopharyngitis [Unknown]
  - Product use issue [Unknown]
  - Arthropathy [Recovered/Resolved with Sequelae]
